FAERS Safety Report 19272721 (Version 8)
Quarter: 2021Q3

REPORT INFORMATION
  Report Type: Report from Study
  Country: ES (occurrence: ES)
  Receive Date: 20210518
  Receipt Date: 20210809
  Transmission Date: 20211014
  Serious: Yes (Death, Life-Threatening, Hospitalization)
  Sender: FDA-Public Use
  Company Number: ES-BRISTOL-MYERS SQUIBB COMPANY-BMS-2021-045568

PATIENT
  Age: 74 Year
  Sex: Male
  Weight: 88 kg

DRUGS (9)
  1. LOPERAMIDE [Concomitant]
     Active Substance: LOPERAMIDE
     Indication: DIARRHOEA
     Dosage: 2 MILLIGRAM
     Route: 048
     Dates: start: 20210326
  2. IPILIMUMAB [Suspect]
     Active Substance: IPILIMUMAB
     Indication: HEPATOCELLULAR CARCINOMA
     Dosage: 260 MILLIGRAM
     Route: 042
     Dates: start: 20201223, end: 20210407
  3. NIVOLUMAB [Suspect]
     Active Substance: NIVOLUMAB
     Indication: HEPATOCELLULAR CARCINOMA
     Dosage: 88 MILLIGRAM
     Route: 042
     Dates: start: 20201223, end: 20210407
  4. PREDNISONE. [Concomitant]
     Active Substance: PREDNISONE
     Indication: COLITIS
     Dosage: 30 MILLIGRAM
     Route: 048
     Dates: start: 20210423
  5. METILPREDNISOLONE [Concomitant]
     Active Substance: METHYLPREDNISOLONE
     Indication: ASPARTATE AMINOTRANSFERASE INCREASED
     Dosage: 120 MILLIGRAM
     Route: 042
     Dates: start: 20210416, end: 20210417
  6. METILPREDNISOLONE [Concomitant]
     Active Substance: METHYLPREDNISOLONE
     Dosage: 40 MILLIGRAM
     Route: 048
     Dates: start: 20210419, end: 20210422
  7. PFIZER?BIONTECH COVID?19 VACCINE [Concomitant]
     Active Substance: TOZINAMERAN
     Indication: PROPHYLAXIS
     Dosage: 1 DOSAGE FORM= 1 UNITS NOT SPECIFIED
     Route: 058
     Dates: start: 20210421, end: 20210421
  8. METILPREDNISOLONE [Concomitant]
     Active Substance: METHYLPREDNISOLONE
     Indication: COLITIS
     Dosage: 4 MILLIGRAM
     Route: 048
     Dates: start: 20210330, end: 20210412
  9. METILPREDNISOLONE [Concomitant]
     Active Substance: METHYLPREDNISOLONE
     Indication: ALANINE AMINOTRANSFERASE INCREASED
     Dosage: 16 MILLIGRAM
     Route: 048
     Dates: start: 20210210, end: 202102

REACTIONS (1)
  - Autonomic nervous system imbalance [Fatal]

NARRATIVE: CASE EVENT DATE: 20210426
